FAERS Safety Report 5904337-6 (Version None)
Quarter: 2008Q4

REPORT INFORMATION
  Report Type: 
  Country: None (occurrence: None)
  Receive Date: 20081001
  Receipt Date: 20080923
  Transmission Date: 20090506
  Serious: Yes (Hospitalization, Other)
  Sender: FDA-Public Use
  Company Number: PHHY2008US12500

PATIENT
  Sex: Female

DRUGS (6)
  1. EXJADE [Suspect]
     Indication: HAEMOSIDEROSIS
     Dosage: 500 MG, TID
     Route: 048
     Dates: start: 20080407, end: 20080413
  2. EXJADE [Suspect]
     Indication: REFRACTORY ANAEMIA
  3. PREDNISONE [Concomitant]
     Dosage: 10 MG
     Route: 048
     Dates: start: 20050101
  4. GLYBURIDE [Concomitant]
     Dosage: 5 MG DAILY
     Route: 048
     Dates: start: 20070101
  5. SYNTHROID [Concomitant]
     Dosage: 200 MG DAILY
     Route: 048
     Dates: start: 20050101
  6. VITAMIN B-12 [Concomitant]
     Dosage: 1000 MCG MONTHLY
     Route: 030
     Dates: start: 20050101

REACTIONS (8)
  - AMNESIA [None]
  - CELLULITIS [None]
  - DIARRHOEA [None]
  - MALAISE [None]
  - OCULAR HYPERAEMIA [None]
  - OEDEMA PERIPHERAL [None]
  - SWELLING FACE [None]
  - VOMITING [None]
